FAERS Safety Report 6135231-6 (Version None)
Quarter: 2009Q1

REPORT INFORMATION
  Report Type: 
  Country: None (occurrence: None)
  Receive Date: 20090327
  Receipt Date: 20090325
  Transmission Date: 20090719
  Serious: Yes (Hospitalization)
  Sender: FDA-Public Use
  Company Number: FR-PFIZER INC-2009188378

PATIENT

DRUGS (6)
  1. SOLU-MEDROL [Suspect]
     Indication: PROPHYLAXIS
  2. ONDANSETRON HCL [Suspect]
     Indication: PROPHYLAXIS
  3. POLARAMINE [Suspect]
     Indication: PROPHYLAXIS
  4. TOPALGIC [Concomitant]
  5. DIFFU K [Concomitant]
  6. LEXOMIL [Concomitant]

REACTIONS (2)
  - CHILLS [None]
  - PYREXIA [None]
